FAERS Safety Report 6195503-6 (Version None)
Quarter: 2009Q2

REPORT INFORMATION
  Report Type: 
  Country: None (occurrence: None)
  Receive Date: 20090519
  Receipt Date: 20090507
  Transmission Date: 20091009
  Serious: Yes (Other)
  Sender: FDA-Public Use
  Company Number: PHHY2009JP17954

PATIENT

DRUGS (1)
  1. IMATINIB MESYLATE [Suspect]
     Indication: ACUTE LYMPHOCYTIC LEUKAEMIA

REACTIONS (4)
  - CONJUNCTIVAL HAEMORRHAGE [None]
  - HAEMATURIA [None]
  - PLASMIN INHIBITOR DECREASED [None]
  - THROMBOCYTOPENIA [None]
